FAERS Safety Report 20932369 (Version 1)
Quarter: 2022Q2

REPORT INFORMATION
  Report Type: Spontaneous
  Country: US (occurrence: US)
  Receive Date: 20220608
  Receipt Date: 20220608
  Transmission Date: 20220721
  Serious: Yes (Other)
  Sender: FDA-Public Use
  Company Number: US-BRISTOL-MYERS SQUIBB COMPANY-2022-038486

PATIENT
  Age: 72 Year
  Sex: Male

DRUGS (2)
  1. POMALYST [Suspect]
     Active Substance: POMALIDOMIDE
     Indication: Salivary gland cancer
     Dosage: TAKE 1 CAPSULE BY MOUTH EVERYDAY ON DAYS 1-21 OF 21 DAY CYCLE.
     Route: 048
     Dates: start: 20220126
  2. ASPIRIN [Concomitant]
     Active Substance: ASPIRIN

REACTIONS (4)
  - Squamous cell carcinoma of lung [Unknown]
  - Fatigue [Unknown]
  - Product dose omission in error [Unknown]
  - Intentional product use issue [Unknown]
